FAERS Safety Report 7702965-9 (Version None)
Quarter: 2011Q3

REPORT INFORMATION
  Report Type: 
  Country: None (occurrence: None)
  Receive Date: 20110823
  Receipt Date: 20110811
  Transmission Date: 20111222
  Serious: Yes (Hospitalization, Other)
  Sender: FDA-Public Use
  Company Number: PHHY2011JP70577

PATIENT
  Sex: Female

DRUGS (9)
  1. LASIX [Concomitant]
     Dosage: 20 MG
     Route: 048
     Dates: start: 20100525
  2. MUCOSTA [Concomitant]
     Dosage: 300 MG
     Route: 048
     Dates: start: 20100624
  3. LEVOTHYROXINE SODIUM [Concomitant]
     Dosage: 25 MG
     Route: 048
     Dates: start: 20101115
  4. FERROUS SULFATE TAB [Concomitant]
  5. AFINITOR [Suspect]
     Indication: METASTATIC RENAL CELL CARCINOMA
     Dosage: 5 MG, DAILY
     Route: 048
     Dates: start: 20110124, end: 20110414
  6. CELECOXIB [Concomitant]
  7. AFINITOR [Suspect]
     Dosage: UNK UKN, UNK
     Route: 048
     Dates: start: 20110502
  8. OXYCONTIN [Concomitant]
  9. FAMOTIDINE [Concomitant]

REACTIONS (7)
  - LEUKOENCEPHALOPATHY [None]
  - NEOPLASM PROGRESSION [None]
  - METASTASES TO CENTRAL NERVOUS SYSTEM [None]
  - EPILEPSY [None]
  - COUGH [None]
  - INTERSTITIAL LUNG DISEASE [None]
  - NEOPLASM MALIGNANT [None]
